FAERS Safety Report 15490462 (Version 2)
Quarter: 2018Q4

REPORT INFORMATION
  Report Type: Report from Study
  Country: US (occurrence: US)
  Receive Date: 20181011
  Receipt Date: 20181120
  Transmission Date: 20190205
  Serious: Yes (Hospitalization)
  Sender: FDA-Public Use
  Company Number: US-ACTELION-A-NJ2018-178623

PATIENT
  Age: 65 Year
  Sex: Male
  Weight: 92.52 kg

DRUGS (5)
  1. ADEMPAS [Concomitant]
     Active Substance: RIOCIGUAT
  2. ADCIRCA [Suspect]
     Active Substance: TADALAFIL
     Indication: PRODUCT USED FOR UNKNOWN INDICATION
     Route: 065
  3. LISINOPRIL. [Concomitant]
     Active Substance: LISINOPRIL
     Dosage: 20 MG, UNK
  4. OPSUMIT [Suspect]
     Active Substance: MACITENTAN
     Indication: PULMONARY ARTERIAL HYPERTENSION
     Dosage: 10 MG, QD
     Route: 048
     Dates: start: 20180809, end: 20180925
  5. LISINOPRIL. [Concomitant]
     Active Substance: LISINOPRIL
     Dosage: 40 MG, UNK

REACTIONS (17)
  - Dizziness [Recovering/Resolving]
  - Dyspnoea [Recovering/Resolving]
  - Haemorrhage [Unknown]
  - Red blood cell count decreased [Recovering/Resolving]
  - Transfusion [Unknown]
  - Syncope [Recovered/Resolved]
  - Hospitalisation [Unknown]
  - Epistaxis [Unknown]
  - Pruritus [Unknown]
  - Chest pain [Unknown]
  - Anaemia [Recovering/Resolving]
  - Haemoglobin decreased [Recovering/Resolving]
  - Hypotension [Recovering/Resolving]
  - Paranasal sinus hypersecretion [Unknown]
  - Haematocrit decreased [Recovering/Resolving]
  - Cough [Unknown]
  - Vitreous floaters [Recovering/Resolving]

NARRATIVE: CASE EVENT DATE: 2018
